FAERS Safety Report 7599098-1 (Version None)
Quarter: 2011Q3

REPORT INFORMATION
  Report Type: 
  Country: None (occurrence: None)
  Receive Date: 20110711
  Receipt Date: 20101126
  Transmission Date: 20111222
  Serious: Yes (Other)
  Sender: FDA-Public Use
  Company Number: NL-BAYER-2010-002722

PATIENT
  Sex: Female

DRUGS (2)
  1. YASMIN [Suspect]
     Indication: POSTPARTUM DEPRESSION
     Dosage: UNK
     Route: 048
     Dates: start: 20050101, end: 20070901
  2. YASMIN [Suspect]
     Dosage: UNK
     Dates: start: 20100901

REACTIONS (4)
  - MUSCULOSKELETAL STIFFNESS [None]
  - POSTPARTUM DEPRESSION [None]
  - ANKYLOSING SPONDYLITIS [None]
  - MUSCULOSKELETAL DISCOMFORT [None]
